FAERS Safety Report 4608447-5 (Version None)
Quarter: 2005Q1

REPORT INFORMATION
  Report Type: 
  Country: None (occurrence: None)
  Receive Date: 20050315
  Receipt Date: 20050307
  Transmission Date: 20050727
  Serious: Yes (Other)
  Sender: FDA-Public Use
  Company Number: 200510749JP

PATIENT
  Age: 47 Year
  Sex: Male

DRUGS (1)
  1. ARAVA [Suspect]
     Route: 048
     Dates: start: 20040101

REACTIONS (3)
  - HEPATOTOXICITY [None]
  - LEUKOPENIA [None]
  - TOXIC EPIDERMAL NECROLYSIS [None]
